FAERS Safety Report 19947156 (Version 1)
Quarter: 2021Q4

REPORT INFORMATION
  Report Type: Spontaneous
  Country: DE (occurrence: DE)
  Receive Date: 20211012
  Receipt Date: 20211012
  Transmission Date: 20220303
  Serious: Yes (Hospitalization, Other)
  Sender: FDA-Public Use
  Company Number: None

PATIENT

DRUGS (2)
  1. XCOPRI [Suspect]
     Active Substance: CENOBAMATE
     Indication: Epilepsy
     Dosage: 200 MG/D SEIT 17.07.2021 (200 MG,1 D) FILM- COATED TABLET
     Route: 048
     Dates: start: 20210717
  2. XCOPRI [Suspect]
     Active Substance: CENOBAMATE
     Dosage: 200 MILLIGRAM, QD
     Route: 048
     Dates: start: 20210404, end: 20210921

REACTIONS (7)
  - Polyserositis [Recovering/Resolving]
  - Dyspnoea [Unknown]
  - Atelectasis [Recovering/Resolving]
  - Pleurisy [Unknown]
  - Pleural effusion [Recovering/Resolving]
  - General physical health deterioration [Unknown]
  - Pain [Unknown]

NARRATIVE: CASE EVENT DATE: 20210101
